FAERS Safety Report 9055675 (Version 3)
Quarter: 2013Q1

REPORT INFORMATION
  Report Type: Report from Study
  Country: DE (occurrence: DE)
  Receive Date: 20130206
  Receipt Date: 20130211
  Transmission Date: 20140127
  Serious: Yes (Other)
  Sender: FDA-Public Use
  Company Number: DE-ROCHE-1188368

PATIENT
  Sex: 0

DRUGS (5)
  1. RANIBIZUMAB [Suspect]
     Indication: MACULAR OEDEMA
     Route: 050
     Dates: start: 20120801
  2. RANIBIZUMAB [Suspect]
     Route: 050
     Dates: start: 20120829
  3. RANIBIZUMAB [Suspect]
     Route: 050
     Dates: start: 20120927
  4. RANIBIZUMAB [Suspect]
     Route: 050
     Dates: start: 20121031
  5. RANIBIZUMAB [Suspect]
     Route: 050
     Dates: start: 20130102

REACTIONS (1)
  - Retinal vein occlusion [Not Recovered/Not Resolved]
